FAERS Safety Report 12559611 (Version 1)
Quarter: 2016Q3

REPORT INFORMATION
  Report Type: Spontaneous
  Country: US (occurrence: None)
  Receive Date: 20160714
  Receipt Date: 20160714
  Transmission Date: 20161109
  Serious: No
  Sender: FDA-Public Use
  Company Number: None

PATIENT
  Age: 71 Year
  Sex: Male

DRUGS (12)
  1. PLAVIX [Concomitant]
     Active Substance: CLOPIDOGREL BISULFATE
  2. CIPRO [Concomitant]
     Active Substance: CIPROFLOXACIN HYDROCHLORIDE
  3. RAPAFLO [Concomitant]
     Active Substance: SILODOSIN
  4. PREDNISONE. [Concomitant]
     Active Substance: PREDNISONE
  5. LIPITOR [Concomitant]
     Active Substance: ATORVASTATIN CALCIUM
  6. MYRBETRIQ [Concomitant]
     Active Substance: MIRABEGRON
  7. ZYTIGA [Suspect]
     Active Substance: ABIRATERONE ACETATE
     Indication: NEOPLASM MALIGNANT
     Route: 048
     Dates: start: 20160224, end: 201607
  8. LISINOPRIL. [Concomitant]
     Active Substance: LISINOPRIL
  9. LOPRESSOR [Concomitant]
     Active Substance: METOPROLOL TARTRATE
  10. DIGOX [Concomitant]
     Active Substance: DIGOXIN
  11. IRON [Concomitant]
     Active Substance: IRON
  12. BICALUTAMIDE. [Concomitant]
     Active Substance: BICALUTAMIDE

REACTIONS (1)
  - Intestinal resection [None]

NARRATIVE: CASE EVENT DATE: 201607
